FAERS Safety Report 16095615 (Version 2)
Quarter: 2019Q2

REPORT INFORMATION
  Report Type: Report from Study
  Country: CA (occurrence: CA)
  Receive Date: 20190320
  Receipt Date: 20190517
  Transmission Date: 20190711
  Serious: Yes (Other)
  Sender: FDA-Public Use
  Company Number: CA-NALPROPION PHARMACEUTICALS INC.-2019-006806

PATIENT

DRUGS (4)
  1. CONTRAVE [Suspect]
     Active Substance: BUPROPION HYDROCHLORIDE\NALTREXONE HYDROCHLORIDE
     Indication: WEIGHT CONTROL
     Dosage: ONE TABLET IN MORNING (1 DOSAGE FORMS,1 IN 1 D)
     Route: 048
     Dates: start: 20181203, end: 20181209
  2. CONTRAVE [Suspect]
     Active Substance: BUPROPION HYDROCHLORIDE\NALTREXONE HYDROCHLORIDE
     Dosage: ONE TABLET IN MORNING AND ONE TABLET AT NIGHT (1 DOSAGE FORMS,2 IN 1 D)
     Route: 048
     Dates: start: 20181210, end: 20181216
  3. CONTRAVE [Suspect]
     Active Substance: BUPROPION HYDROCHLORIDE\NALTREXONE HYDROCHLORIDE
     Dosage: TWO TABLETS IN MORNING AND ONE TABLET AT NIGHT (2 IN 1 D)
     Route: 048
     Dates: start: 20181217, end: 20181223
  4. CONTRAVE [Suspect]
     Active Substance: BUPROPION HYDROCHLORIDE\NALTREXONE HYDROCHLORIDE
     Dosage: TWO TABLETS IN MORNING AND TWO TABLETS AT NIGHT (2 DOSAGE FORMS,2 IN 1 D)
     Route: 048
     Dates: start: 20181224, end: 20190225

REACTIONS (3)
  - Concussion [Unknown]
  - Headache [Not Recovered/Not Resolved]
  - Fall [Unknown]
